FAERS Safety Report 8481926 (Version 3)
Quarter: 2012Q4

REPORT INFORMATION
  Report Type: 
  Country: JP (occurrence: JP)
  Receive Date: 20120329
  Receipt Date: 20120829
  Transmission Date: 20130627
  Serious: No
  Sender: FDA-Public Use
  Company Number: JP-PFIZER INC-2012075224

PATIENT
  Age: 73 Year
  Sex: Female

DRUGS (7)
  1. VFEND [Suspect]
     Indication: CRYPTOCOCCOSIS
     Dosage: 480 mg, 1x/day
     Route: 041
     Dates: start: 200911, end: 200911
  2. VFEND [Suspect]
     Dosage: 300 mg, 1x/day
     Route: 041
     Dates: start: 200911
  3. VFEND [Suspect]
     Indication: CRYPTOCOCCOSIS
     Dosage: 300 mg, 1x/day
     Route: 048
     Dates: start: 200912, end: 201002
  4. VFEND [Suspect]
     Dosage: 200 mg, 1x/day
     Route: 048
     Dates: start: 201003, end: 201011
  5. VFEND [Suspect]
     Dosage: 200 mg, 1x/day
     Route: 048
  6. PREDONINE [Concomitant]
     Dosage: 10 mg, UNK
     Route: 048
     Dates: start: 200911
  7. ZYVOX [Concomitant]
     Indication: STAPHYLOCOCCAL INFECTION
     Dosage: UNK
     Route: 041
     Dates: start: 201001

REACTIONS (2)
  - Decreased appetite [Recovered/Resolved]
  - Hepatic enzyme increased [Recovered/Resolved]
